FAERS Safety Report 4892470-X (Version None)
Quarter: 2006Q1

REPORT INFORMATION
  Report Type: 
  Country: None (occurrence: None)
  Receive Date: 20060126
  Receipt Date: 20050708
  Transmission Date: 20060701
  Serious: No
  Sender: FDA-Public Use
  Company Number: US-BRISTOL-MYERS SQUIBB COMPANY-13034152

PATIENT
  Sex: Female

DRUGS (2)
  1. CEFZIL [Suspect]
     Indication: PHARYNGITIS
     Route: 048
     Dates: start: 20050630, end: 20050706
  2. CEFZIL [Suspect]
     Indication: EAR INFECTION
     Route: 048
     Dates: start: 20050630, end: 20050706

REACTIONS (1)
  - DRUG INEFFECTIVE [None]
